FAERS Safety Report 20819418 (Version 1)
Quarter: 2022Q2

REPORT INFORMATION
  Report Type: Spontaneous
  Country: US (occurrence: None)
  Receive Date: 20220511
  Receipt Date: 20220511
  Transmission Date: 20220721
  Serious: Yes (Other)
  Sender: FDA-Public Use
  Company Number: None

PATIENT
  Age: 59 Year
  Sex: Female

DRUGS (1)
  1. XEOMIN [Suspect]
     Active Substance: INCOBOTULINUMTOXINA
     Indication: Skin wrinkling
     Dosage: OTHER QUANTITY : 60 60;?
     Route: 030
     Dates: start: 20220415

REACTIONS (9)
  - Adverse event [None]
  - Vomiting [None]
  - Back pain [None]
  - Pain in extremity [None]
  - Pain in extremity [None]
  - Chest discomfort [None]
  - Feeling abnormal [None]
  - Hypoaesthesia [None]
  - Fatigue [None]

NARRATIVE: CASE EVENT DATE: 20220415
